FAERS Safety Report 16744272 (Version 7)
Quarter: 2022Q2

REPORT INFORMATION
  Report Type: Spontaneous
  Country: US (occurrence: US)
  Receive Date: 20190827
  Receipt Date: 20220530
  Transmission Date: 20220721
  Serious: Yes (Death, Hospitalization, Other)
  Sender: FDA-Public Use
  Company Number: PHEH2019US035195

PATIENT
  Age: 26 Year
  Sex: Male
  Weight: 82 kg

DRUGS (18)
  1. KYMRIAH [Suspect]
     Active Substance: TISAGENLECLEUCEL
     Indication: Acute lymphocytic leukaemia
     Dosage: TOTAL CELL COUNT: 1.27 X 10E9. VIABLE T-CELL DOSE 0.7X10E8, ONCE/SINGLE
     Route: 042
     Dates: start: 20190514
  2. ALLOPURINOL [Concomitant]
     Active Substance: ALLOPURINOL
     Indication: Product used for unknown indication
     Dosage: 1 DF, Q12H
     Route: 048
  3. AMLODIPINE [Concomitant]
     Active Substance: AMLODIPINE BESYLATE
     Indication: Product used for unknown indication
     Dosage: 1 DF, QD
     Route: 048
  4. PANTOPRAZOLE [Concomitant]
     Active Substance: PANTOPRAZOLE
     Indication: Product used for unknown indication
     Dosage: 1 DF, QD (ENTERIC)
     Route: 048
  5. CETIRIZINE HYDROCHLORIDE [Concomitant]
     Active Substance: CETIRIZINE HYDROCHLORIDE
     Indication: Product used for unknown indication
     Dosage: 1 DF, QD
     Route: 048
  6. CLONIDINE [Concomitant]
     Active Substance: CLONIDINE
     Indication: Anxiety
     Dosage: 0.1 MG, PRN
     Route: 048
  7. GABAPENTIN [Concomitant]
     Active Substance: GABAPENTIN
     Indication: Product used for unknown indication
     Dosage: 3 DF, TID
     Route: 048
  8. MAGNESIUM [Concomitant]
     Active Substance: MAGNESIUM
     Indication: Product used for unknown indication
     Dosage: 1 DF, TID
     Route: 048
  9. MONTELUKAST [Concomitant]
     Active Substance: MONTELUKAST SODIUM
     Indication: Product used for unknown indication
     Dosage: 1 DF, QD
     Route: 048
  10. PRAZOSIN [Concomitant]
     Active Substance: PRAZOSIN
     Indication: Insomnia
     Dosage: 1 DF, QD (AT BEDTIME)
     Route: 048
  11. QUETIAPINE [Concomitant]
     Active Substance: QUETIAPINE
     Indication: Product used for unknown indication
     Dosage: 1 DF, QD (AT BEDTIME)
     Route: 048
  12. SUVOREXANT [Concomitant]
     Active Substance: SUVOREXANT
     Indication: Product used for unknown indication
     Dosage: 1 DF, QD (AT BEDTIME)
     Route: 048
  13. AMOXICILLIN [Concomitant]
     Active Substance: AMOXICILLIN
     Indication: Product used for unknown indication
     Dosage: 1 DF, TID
     Route: 048
  14. CRESEMBA [Concomitant]
     Active Substance: ISAVUCONAZONIUM SULFATE
     Indication: Product used for unknown indication
     Dosage: 2 DF, Q24H
     Route: 048
  15. VORTIOXETINE [Concomitant]
     Active Substance: VORTIOXETINE
     Indication: Product used for unknown indication
     Dosage: 40 MG, QD (IN THE MORNING)
     Route: 048
  16. LIDOCAINE [Concomitant]
     Active Substance: LIDOCAINE
     Indication: Product used for unknown indication
     Dosage: 1 DF, PRN
     Route: 061
  17. METRONIDAZOLE [Concomitant]
     Active Substance: METRONIDAZOLE
     Indication: Product used for unknown indication
     Dosage: 1 DF, TID
     Route: 048
  18. PENTAMIDINE [Concomitant]
     Active Substance: PENTAMIDINE
     Indication: Product used for unknown indication
     Dosage: 300 MG
     Route: 042

REACTIONS (27)
  - Acute lymphocytic leukaemia recurrent [Fatal]
  - Malignant neoplasm progression [Fatal]
  - Eye disorder [Unknown]
  - Feeding disorder [Unknown]
  - Cholelithiasis [Unknown]
  - Hepatosplenomegaly [Unknown]
  - Treatment failure [Unknown]
  - Sinus pain [Unknown]
  - Enterococcal infection [Unknown]
  - Hypertransaminasaemia [Unknown]
  - Phaeohyphomycosis [Unknown]
  - Cytokine release syndrome [Unknown]
  - Fatigue [Unknown]
  - Neutropenia [Unknown]
  - Nausea [Unknown]
  - Diarrhoea [Unknown]
  - Decreased appetite [Unknown]
  - Hypervolaemia [Unknown]
  - Tachycardia [Unknown]
  - Normocytic anaemia [Unknown]
  - Leukopenia [Unknown]
  - Lymphopenia [Unknown]
  - Thrombocytopenia [Unknown]
  - Swelling face [Unknown]
  - Pyrexia [Unknown]
  - Sinusitis fungal [Not Recovered/Not Resolved]
  - Clostridium bacteraemia [Unknown]

NARRATIVE: CASE EVENT DATE: 20190525
